FAERS Safety Report 5913497-2 (Version None)
Quarter: 2008Q4

REPORT INFORMATION
  Report Type: 
  Country: None (occurrence: None)
  Receive Date: 20081008
  Receipt Date: 20081008
  Transmission Date: 20090506
  Serious: No
  Sender: FDA-Public Use
  Company Number: None

PATIENT
  Age: 35 Year
  Sex: Female
  Weight: 50.8029 kg

DRUGS (1)
  1. CIPRO [Suspect]
     Indication: CORNEAL INFECTION
     Dosage: 1 PILL TWICE DAILY PO
     Route: 048
     Dates: start: 20080501

REACTIONS (4)
  - ARTHRALGIA [None]
  - IMMOBILE [None]
  - PAIN IN EXTREMITY [None]
  - TENDONITIS [None]
